FAERS Safety Report 4706503-4 (Version None)
Quarter: 2005Q3

REPORT INFORMATION
  Report Type: 
  Country: None (occurrence: None)
  Receive Date: 20050705
  Receipt Date: 20050630
  Transmission Date: 20060218
  Serious: Yes (Other)
  Sender: FDA-Public Use
  Company Number: GB-GLAXOSMITHKLINE-B0386544A

PATIENT

DRUGS (1)
  1. AMOXIL [Suspect]
     Indication: PROPHYLAXIS
     Dosage: 3G SINGLE DOSE
     Route: 048
     Dates: start: 20050630, end: 20050630

REACTIONS (2)
  - SYNCOPE VASOVAGAL [None]
  - VOMITING [None]
